FAERS Safety Report 8176156-4 (Version None)
Quarter: 2012Q1

REPORT INFORMATION
  Report Type: 
  Country: None (occurrence: None)
  Receive Date: 20120301
  Receipt Date: 20120221
  Transmission Date: 20120608
  Serious: No
  Sender: FDA-Public Use
  Company Number: JP-JNJFOC-20120212408

PATIENT

DRUGS (2)
  1. OXYCODONE HCL [Concomitant]
     Indication: CANCER PAIN
  2. FENTANYL-100 [Suspect]
     Indication: CANCER PAIN
     Route: 062

REACTIONS (1)
  - DRUG PRESCRIBING ERROR [None]
